FAERS Safety Report 7492082-8 (Version None)
Quarter: 2011Q2

REPORT INFORMATION
  Report Type: 
  Country: None (occurrence: None)
  Receive Date: 20110519
  Receipt Date: 20110506
  Transmission Date: 20111010
  Serious: Yes (Disabling)
  Sender: FDA-Public Use
  Company Number: JP-UCBSA-030148

PATIENT
  Sex: Male
  Weight: 64 kg

DRUGS (2)
  1. KEPPRA [Suspect]
     Indication: TEMPORAL LOBE EPILEPSY
     Route: 048
     Dates: start: 20110301, end: 20110303
  2. ALEVIATIN [Concomitant]
     Dosage: 2.5 DF DAILY
     Route: 048
     Dates: start: 20070620

REACTIONS (1)
  - MENTAL DISORDER [None]
